FAERS Safety Report 19418854 (Version 7)
Quarter: 2024Q2

REPORT INFORMATION
  Report Type: Spontaneous
  Country: LT (occurrence: LT)
  Receive Date: 20210615
  Receipt Date: 20240417
  Transmission Date: 20240715
  Serious: Yes (Other)
  Sender: FDA-Public Use
  Company Number: LT-002147023-NVSC2020LT344336

PATIENT
  Age: 73 Year
  Sex: Female

DRUGS (11)
  1. OXALIPLATIN [Suspect]
     Active Substance: OXALIPLATIN
     Indication: Gastric cancer stage III
     Dosage: UNK UNK, 4  CYCLE
     Route: 065
     Dates: start: 2018
  2. OXALIPLATIN [Suspect]
     Active Substance: OXALIPLATIN
     Dosage: UNK UNK, UP TO 8 CYCLES (AFTER SURGERY)
     Route: 065
  3. DOCETAXEL [Suspect]
     Active Substance: DOCETAXEL\DOCETAXEL ANHYDROUS
     Indication: Gastric cancer stage III
     Dosage: UNK, UP TO 8 CYCLES (AFTER SURGERY)
     Route: 065
     Dates: start: 2018
  4. DOCETAXEL [Suspect]
     Active Substance: DOCETAXEL\DOCETAXEL ANHYDROUS
     Dosage: UNK UNK, 4 CYCLE
     Route: 065
  5. FLUOROURACIL [Suspect]
     Active Substance: FLUOROURACIL
     Indication: Gastric cancer
     Dosage: UNK, 4 CYCLE
     Route: 065
     Dates: start: 2018
  6. FLUOROURACIL [Suspect]
     Active Substance: FLUOROURACIL
     Indication: Gastric cancer stage III
     Dosage: UNK, UP TO 8 CYCLES (AFTER SURGERY)
     Route: 065
  7. IRINOTECAN [Suspect]
     Active Substance: IRINOTECAN
     Indication: Gastric cancer stage III
     Dosage: UNK, CYCLE (6 CYCLES)
     Route: 065
     Dates: start: 2019
  8. PACLITAXEL [Suspect]
     Active Substance: PACLITAXEL
     Indication: Gastric cancer stage III
     Dosage: UNK, CYCLE (6 CYCLE)
     Route: 065
     Dates: start: 201901, end: 2019
  9. PACLITAXEL [Suspect]
     Active Substance: PACLITAXEL
     Indication: Adenocarcinoma gastric
  10. RAMUCIRUMAB [Suspect]
     Active Substance: RAMUCIRUMAB
     Indication: Gastric cancer stage III
     Dosage: UNK, CYCLE (CYCLIC)
     Route: 065
  11. RAMUCIRUMAB [Suspect]
     Active Substance: RAMUCIRUMAB
     Indication: Adenocarcinoma gastric
     Dosage: UNK, CYCLE (CYCLIC)
     Route: 065
     Dates: start: 201901, end: 201908

REACTIONS (13)
  - Malignant neoplasm progression [Unknown]
  - Gastric cancer [Unknown]
  - Ascites [Unknown]
  - Metastases to peritoneum [Unknown]
  - Therapeutic product effect incomplete [Unknown]
  - Haematotoxicity [Recovering/Resolving]
  - Diarrhoea [Recovering/Resolving]
  - Polyneuropathy [Recovering/Resolving]
  - Anaemia [Recovering/Resolving]
  - Neutropenia [Recovering/Resolving]
  - Therapy partial responder [Unknown]
  - Product use in unapproved indication [Unknown]
  - Off label use [Unknown]

NARRATIVE: CASE EVENT DATE: 20190101
